FAERS Safety Report 10236784 (Version 1)
Quarter: 2014Q2

REPORT INFORMATION
  Report Type: Spontaneous
  Country: DE (occurrence: DE)
  Receive Date: 20140613
  Receipt Date: 20140613
  Transmission Date: 20141212
  Serious: Yes (Other)
  Sender: FDA-Public Use
  Company Number: DE-GLAXOSMITHKLINE-D0083333A

PATIENT
  Sex: Male

DRUGS (4)
  1. DUODART [Suspect]
     Indication: BENIGN PROSTATIC HYPERPLASIA
     Route: 048
     Dates: start: 201203, end: 201207
  2. DUODART [Suspect]
     Indication: BENIGN PROSTATIC HYPERPLASIA
     Route: 048
     Dates: start: 201401, end: 201403
  3. LISINOPRIL [Suspect]
     Dosage: 20MG PER DAY
     Route: 048
  4. METFORMIN [Concomitant]
     Dosage: 500MG TWICE PER DAY
     Route: 048

REACTIONS (10)
  - Circulatory collapse [Recovering/Resolving]
  - Vertigo [Recovering/Resolving]
  - Hypotension [Recovering/Resolving]
  - Heart rate decreased [Recovering/Resolving]
  - Dizziness [Unknown]
  - Oedema [Unknown]
  - Circulatory collapse [Unknown]
  - Vertigo [Unknown]
  - Hypotension [Unknown]
  - Heart rate decreased [Unknown]
